FAERS Safety Report 4973367-3 (Version None)
Quarter: 2006Q2

REPORT INFORMATION
  Report Type: 
  Country: None (occurrence: None)
  Receive Date: 20060414
  Receipt Date: 20060407
  Transmission Date: 20061013
  Serious: Yes (Hospitalization)
  Sender: FDA-Public Use
  Company Number: GB-BOEHRINGER INGELHEIM PHARMACEUTICALS, INC.-2006-DE-01882GD

PATIENT
  Age: 33 Year
  Sex: Female

DRUGS (16)
  1. NEVIRAPINE [Suspect]
     Indication: PROPHYLAXIS
  2. NEVIRAPINE [Suspect]
     Indication: HUMAN IMMUNODEFICIENCY VIRUS TRANSMISSION
  3. NEVIRAPINE [Suspect]
     Indication: HIV INFECTION
  4. LAMIVUDINE [Suspect]
     Indication: PROPHYLAXIS
  5. LAMIVUDINE [Suspect]
     Indication: HUMAN IMMUNODEFICIENCY VIRUS TRANSMISSION
  6. LAMIVUDINE [Suspect]
     Indication: HIV INFECTION
  7. TENOFOVIR [Suspect]
     Indication: PROPHYLAXIS
  8. TENOFOVIR [Suspect]
     Indication: HUMAN IMMUNODEFICIENCY VIRUS TRANSMISSION
  9. TENOFOVIR [Suspect]
     Indication: HIV INFECTION
  10. RITONAVIR [Suspect]
     Indication: PROPHYLAXIS
  11. RITONAVIR [Suspect]
     Indication: HUMAN IMMUNODEFICIENCY VIRUS TRANSMISSION
  12. RITONAVIR [Suspect]
     Indication: HIV INFECTION
  13. FOSAMPRENAVIR [Suspect]
     Indication: PROPHYLAXIS
  14. FOSAMPRENAVIR [Suspect]
     Indication: HUMAN IMMUNODEFICIENCY VIRUS TRANSMISSION
  15. FOSAMPRENAVIR [Suspect]
     Indication: HIV INFECTION
  16. MEDICINALPRODUCT NOT SPECIFIED BY SENDER [Concomitant]

REACTIONS (7)
  - CAESAREAN SECTION [None]
  - CD4 LYMPHOCYTES DECREASED [None]
  - DRUG EXPOSURE DURING PREGNANCY [None]
  - DRUG INEFFECTIVE [None]
  - NAUSEA [None]
  - VIRAL LOAD INCREASED [None]
  - VOMITING [None]
